FAERS Safety Report 8974124 (Version 1)
Quarter: 2012Q4

REPORT INFORMATION
  Report Type: Spontaneous
  Country: US (occurrence: None)
  Receive Date: 20121217
  Receipt Date: 20121217
  Transmission Date: 20130627
  Serious: No
  Sender: FDA-Public Use
  Company Number: None

PATIENT
  Age: 63 Year
  Sex: Male
  Weight: 133.6 kg

DRUGS (4)
  1. VANCOMYCIN [Suspect]
     Dosage: normal saline 250 ml infuse over 90 minutes
     Route: 042
     Dates: start: 20121116, end: 20121116
  2. EPINEPHRINE [Suspect]
     Route: 042
  3. NOREPINEPHRINE [Suspect]
     Route: 042
  4. DOBUTAMINE [Suspect]
     Route: 042

REACTIONS (1)
  - Oedema [None]
